FAERS Safety Report 4772687-5 (Version None)
Quarter: 2005Q3

REPORT INFORMATION
  Report Type: 
  Country: None (occurrence: None)
  Receive Date: 20050919
  Receipt Date: 20050913
  Transmission Date: 20060218
  Serious: Yes (Other)
  Sender: FDA-Public Use
  Company Number: 200518057GDDC

PATIENT
  Age: 30 Year
  Sex: Female

DRUGS (1)
  1. FLAGYL [Suspect]
     Dosage: DOSE: UNK
     Route: 048

REACTIONS (2)
  - FATIGUE [None]
  - HEPATIC ENZYME INCREASED [None]
